FAERS Safety Report 4287211-3 (Version None)
Quarter: 2004Q1

REPORT INFORMATION
  Report Type: 
  Country: None (occurrence: None)
  Receive Date: 20040126
  Receipt Date: 20031006
  Transmission Date: 20041129
  Serious: No
  Sender: FDA-Public Use
  Company Number: USA031049182

PATIENT
  Age: 82 Year
  Sex: Female

DRUGS (3)
  1. FORTEO [Suspect]
     Indication: OSTEOPOROSIS
     Dates: start: 20030922
  2. PREDNISONE [Concomitant]
  3. CELEBREX [Concomitant]

REACTIONS (9)
  - ASTHENIA [None]
  - BEDRIDDEN [None]
  - BONE PAIN [None]
  - CHROMATURIA [None]
  - DIZZINESS [None]
  - MUSCULAR WEAKNESS [None]
  - NAUSEA [None]
  - PAIN [None]
  - PYREXIA [None]
